FAERS Safety Report 4854793-X (Version None)
Quarter: 2005Q4

REPORT INFORMATION
  Report Type: 
  Country: None (occurrence: None)
  Receive Date: 20051214
  Receipt Date: 20051214
  Transmission Date: 20060501
  Serious: Yes (Hospitalization)
  Sender: FDA-Public Use
  Company Number: None

PATIENT
  Age: 76 Year
  Sex: Male
  Weight: 65.9984 kg

DRUGS (13)
  1. OXALIPLATIN [Suspect]
     Indication: METASTATIC NEOPLASM
     Dates: start: 20051122, end: 20051122
  2. LIPITOR [Concomitant]
  3. LASIX [Concomitant]
  4. IRON [Concomitant]
  5. AMITRIPTYLINE [Concomitant]
  6. METHOTREXATE [Concomitant]
  7. ASPIRIN [Concomitant]
  8. CHLORPROMAZINE [Concomitant]
  9. HYDROCODNE/APAP [Concomitant]
  10. AMARYL [Concomitant]
  11. PREDNISONE TAB [Concomitant]
  12. ATENOLOL [Concomitant]
  13. ZOLOFT [Concomitant]

REACTIONS (1)
  - SMALL INTESTINAL OBSTRUCTION [None]
